FAERS Safety Report 8357323-3 (Version None)
Quarter: 2012Q2

REPORT INFORMATION
  Report Type: 
  Country: None (occurrence: None)
  Receive Date: 20120514
  Receipt Date: 20120503
  Transmission Date: 20120825
  Serious: Yes (Other)
  Sender: FDA-Public Use
  Company Number: GB-JNJFOC-20120303770

PATIENT
  Age: 31 Year
  Sex: Male

DRUGS (6)
  1. DEPAKOTE [Concomitant]
     Route: 065
  2. HALDOL [Suspect]
     Indication: BIPOLAR DISORDER
     Route: 030
     Dates: start: 20120403
  3. HALDOL [Suspect]
     Route: 030
     Dates: start: 20110701
  4. HALOPERIDOL [Concomitant]
     Indication: PRODUCT USED FOR UNKNOWN INDICATION
     Route: 048
  5. ZOPICLONE [Concomitant]
     Indication: INSOMNIA
     Route: 065
  6. DIAZEPAM [Concomitant]
     Indication: PRODUCT USED FOR UNKNOWN INDICATION
     Route: 048

REACTIONS (2)
  - INCORRECT DOSE ADMINISTERED [None]
  - DRUG INEFFECTIVE [None]
